FAERS Safety Report 17931894 (Version 1)
Quarter: 2020Q2

REPORT INFORMATION
  Report Type: Other
  Country: CA (occurrence: CA)
  Receive Date: 20200624
  Receipt Date: 20200624
  Transmission Date: 20200714
  Serious: Yes (Other)
  Sender: FDA-Public Use
  Company Number: CA-APOTEX-2020AP012431

PATIENT
  Age: 64 Year
  Sex: Female

DRUGS (10)
  1. IXEKIZUMAB [Suspect]
     Active Substance: IXEKIZUMAB
     Indication: PRODUCT USED FOR UNKNOWN INDICATION
     Dosage: UNK
     Route: 065
  2. COSENTYX [Suspect]
     Active Substance: SECUKINUMAB
     Indication: PSORIASIS
     Dosage: 300 MG, UNK
     Route: 058
  3. CYCLOSPORINE. [Suspect]
     Active Substance: CYCLOSPORINE
     Indication: PRODUCT USED FOR UNKNOWN INDICATION
     Dosage: UNK
     Route: 065
  4. CYCLOSPORINE. [Suspect]
     Active Substance: CYCLOSPORINE
     Dosage: UNK
     Route: 065
  5. IXEKIZUMAB [Suspect]
     Active Substance: IXEKIZUMAB
     Dosage: UNK
     Route: 065
  6. CYCLOSPORINE. [Suspect]
     Active Substance: CYCLOSPORINE
     Dosage: UNK
     Route: 065
  7. IXEKIZUMAB [Suspect]
     Active Substance: IXEKIZUMAB
     Dosage: UNK
     Route: 065
  8. RISANKIZUMAB [Suspect]
     Active Substance: RISANKIZUMAB
     Indication: PRODUCT USED FOR UNKNOWN INDICATION
     Dosage: UNK
     Route: 065
  9. ADALIMUMAB [Suspect]
     Active Substance: ADALIMUMAB
     Indication: PRODUCT USED FOR UNKNOWN INDICATION
     Dosage: UNK
     Route: 065
  10. CLOBETASOL [Concomitant]
     Active Substance: CLOBETASOL
     Indication: PRODUCT USED FOR UNKNOWN INDICATION
     Dosage: UNK
     Route: 065

REACTIONS (10)
  - Vertigo [Not Recovered/Not Resolved]
  - Urinary tract infection [Not Recovered/Not Resolved]
  - Arthralgia [Not Recovered/Not Resolved]
  - Rosacea [Not Recovered/Not Resolved]
  - Alopecia [Not Recovered/Not Resolved]
  - Renal impairment [Not Recovered/Not Resolved]
  - Injection site reaction [Not Recovered/Not Resolved]
  - Iron deficiency [Not Recovered/Not Resolved]
  - Streptococcal infection [Not Recovered/Not Resolved]
  - Drug ineffective [Not Recovered/Not Resolved]
